FAERS Safety Report 7968982-9 (Version None)
Quarter: 2011Q4

REPORT INFORMATION
  Report Type: 
  Country: None (occurrence: None)
  Receive Date: 20111209
  Receipt Date: 20111202
  Transmission Date: 20120403
  Serious: Yes (Other)
  Sender: FDA-Public Use
  Company Number: US-JNJFOC-20111202771

PATIENT
  Age: 21 Year
  Sex: Male
  Weight: 58.51 kg

DRUGS (5)
  1. OMEPRAZOLE [Suspect]
     Dates: start: 20111104, end: 20111108
  2. ZANTAC [Suspect]
     Indication: GASTROOESOPHAGEAL REFLUX DISEASE
     Dates: start: 20111116, end: 20111120
  3. PEPCID AC [Suspect]
     Route: 048
  4. OMEPRAZOLE [Suspect]
     Indication: GASTROOESOPHAGEAL REFLUX DISEASE
     Dates: start: 20111108, end: 20111110
  5. PEPCID AC [Suspect]
     Indication: GASTROOESOPHAGEAL REFLUX DISEASE
     Route: 048
     Dates: start: 20111121, end: 20111126

REACTIONS (12)
  - FEELING ABNORMAL [None]
  - MYDRIASIS [None]
  - HEART RATE DECREASED [None]
  - DEPRESSION [None]
  - DISTURBANCE IN ATTENTION [None]
  - EYE DISORDER [None]
  - SUICIDAL IDEATION [None]
  - INSOMNIA [None]
  - ABNORMAL DREAMS [None]
  - DYSPNOEA [None]
  - ASTHENIA [None]
  - HEART RATE INCREASED [None]
